FAERS Safety Report 5787650-5 (Version None)
Quarter: 2008Q2

REPORT INFORMATION
  Report Type: 
  Country: None (occurrence: None)
  Receive Date: 20080623
  Receipt Date: 20080623
  Transmission Date: 20081010
  Serious: No
  Sender: FDA-Public Use
  Company Number: None

PATIENT
  Age: 72 Year
  Sex: Female
  Weight: 51.2565 kg

DRUGS (1)
  1. DIGITEK 125MCG [Suspect]
     Indication: ATRIAL FIBRILLATION
     Dosage: 125MCG DAILY PO
     Route: 048
     Dates: start: 20071205, end: 20080430

REACTIONS (4)
  - ANOREXIA [None]
  - DIZZINESS [None]
  - NAUSEA [None]
  - WEIGHT DECREASED [None]
